FAERS Safety Report 5406985-9 (Version None)
Quarter: 2007Q3

REPORT INFORMATION
  Report Type: 
  Country: None (occurrence: None)
  Receive Date: 20070802
  Receipt Date: 20070702
  Transmission Date: 20080115
  Serious: Yes (Death, Other)
  Sender: FDA-Public Use
  Company Number: 6035249

PATIENT
  Age: 20 Year
  Sex: Male

DRUGS (6)
  1. CARBOPLATIN [Suspect]
     Indication: CHOROID PLEXUS PAPILLOMA
     Dosage: (400 MG/M2),  2 COURSES
     Dates: start: 20000501
  2. CISPLATIN [Suspect]
     Indication: CHOROID PLEXUS PAPILLOMA
     Dosage: (90 MG/M2)
     Dates: start: 20000501
  3. ETOPOSIDE [Suspect]
     Indication: CHOROID PLEXUS PAPILLOMA
     Dosage: 75 MG/M2 (75 MG/M2, 1 IN 1 D)
     Dates: start: 20000501
  4. CYCLOPHOSPHAMIDE [Suspect]
     Indication: CHOROID PLEXUS PAPILLOMA
     Dosage: 1500 MG/M2 (1500 MG/M2, 1 IN 1 D)
     Dates: start: 20000501
  5. VINCRISTINE [Concomitant]
  6. RADIOTHERAPY [Concomitant]

REACTIONS (5)
  - ASTHENIA [None]
  - CONFUSIONAL STATE [None]
  - CONVULSION [None]
  - GLIOBLASTOMA [None]
  - MEMORY IMPAIRMENT [None]
